FAERS Safety Report 5825704-5 (Version None)
Quarter: 2008Q3

REPORT INFORMATION
  Report Type: 
  Country: None (occurrence: None)
  Receive Date: 20080729
  Receipt Date: 20080107
  Transmission Date: 20090109
  Serious: Yes (Hospitalization)
  Sender: FDA-Public Use
  Company Number: FR-WYE-H01894008

PATIENT
  Age: 3 Year
  Sex: Female

DRUGS (3)
  1. OROKEN [Suspect]
     Indication: DIARRHOEA
     Dosage: UNKNOWN
     Dates: start: 20051201
  2. OROKEN [Suspect]
     Indication: OCULAR ICTERUS
  3. CO-TRIMOXAZOLE [Suspect]
     Indication: DIARRHOEA
     Dosage: UNKNOWN

REACTIONS (2)
  - DRUG RASH WITH EOSINOPHILIA AND SYSTEMIC SYMPTOMS [None]
  - RENAL FAILURE ACUTE [None]
